FAERS Safety Report 5736864-9 (Version None)
Quarter: 2008Q2

REPORT INFORMATION
  Report Type: 
  Country: None (occurrence: None)
  Receive Date: 20080508
  Receipt Date: 20080424
  Transmission Date: 20081010
  Serious: Yes (Other)
  Sender: FDA-Public Use
  Company Number: VNL_01043_2008

PATIENT
  Sex: Female

DRUGS (10)
  1. APO-GO [Suspect]
     Indication: PARKINSON'S DISEASE
     Dosage: (2.5 MG PER HOUR FOR 2 WEEKS FOR 24 HOURS SUBCUTANEOUS)
     Route: 058
     Dates: start: 20080301
  2. STALEVO 100 [Concomitant]
  3. DOMPERIDONE [Concomitant]
  4. GABAPENTIN [Concomitant]
  5. RANITIDINE [Concomitant]
  6. LEVOTHYROXINE SODIUM [Concomitant]
  7. CITALOPRAM HYDROBROMIDE [Concomitant]
  8. CLONAZEPAM [Concomitant]
  9. FOLIC ACID [Concomitant]
  10. HYDROXOCOBALAMIN [Concomitant]

REACTIONS (7)
  - ANAEMIA [None]
  - INFUSION SITE ERYTHEMA [None]
  - INFUSION SITE INFLAMMATION [None]
  - INFUSION SITE MASS [None]
  - INFUSION SITE PAIN [None]
  - SKIN NODULE [None]
  - THROMBOCYTOPENIA [None]
